FAERS Safety Report 9222901 (Version 1)
Quarter: 2013Q2

REPORT INFORMATION
  Report Type: Spontaneous
  Country: US (occurrence: US)
  Receive Date: 20130410
  Receipt Date: 20130410
  Transmission Date: 20140414
  Serious: No
  Sender: FDA-Public Use
  Company Number: US-PFIZER INC-2013112815

PATIENT
  Age: 74 Year
  Sex: Male

DRUGS (2)
  1. ADVIL [Suspect]
     Dosage: UNK
  2. ASPIRIN [Concomitant]
     Dosage: UNK

REACTIONS (5)
  - Musculoskeletal stiffness [Unknown]
  - Neck pain [Unknown]
  - Musculoskeletal pain [Unknown]
  - Nasopharyngitis [Unknown]
  - Faeces discoloured [Unknown]
